FAERS Safety Report 9894287 (Version 1)
Quarter: 2014Q1

REPORT INFORMATION
  Report Type: Spontaneous
  Country: FR (occurrence: FR)
  Receive Date: 20140213
  Receipt Date: 20140213
  Transmission Date: 20141002
  Serious: Yes (Hospitalization)
  Sender: FDA-Public Use
  Company Number: FR-GLAXOSMITHKLINE-B0967114A

PATIENT
  Age: 72 Year
  Sex: Female

DRUGS (14)
  1. ZELITREX [Suspect]
     Indication: PROPHYLAXIS
     Route: 048
     Dates: start: 20090825, end: 20090825
  2. METHOTREXATE [Suspect]
     Indication: RHEUMATOID ARTHRITIS
     Dosage: 20MG WEEKLY
     Route: 048
  3. TAVANIC [Suspect]
     Indication: PROPHYLAXIS
     Route: 048
     Dates: start: 20090825, end: 20090825
  4. LEVOTHYROX [Concomitant]
     Dosage: 75MCG PER DAY
     Route: 048
  5. COTAREG [Concomitant]
     Indication: HYPERTENSION
     Dosage: 160MG PER DAY
     Route: 048
  6. ISOPTINE [Concomitant]
     Indication: HYPERTENSION
     Dosage: 240MG PER DAY
     Route: 048
  7. IMOVANE [Concomitant]
     Indication: INSOMNIA
     Route: 048
  8. LANSOPRAZOLE [Concomitant]
     Dosage: 15MG PER DAY
     Route: 048
  9. ALPRAZOLAM [Concomitant]
     Indication: ANXIETY
     Dosage: .125MG PER DAY
     Route: 048
  10. ZOLOFT [Concomitant]
     Dosage: 50MG PER DAY
     Route: 048
  11. CELESTENE [Concomitant]
     Dosage: 2.5MG PER DAY
     Route: 048
  12. LEDERFOLINE [Concomitant]
     Dosage: 10MG TWICE PER DAY
     Route: 048
  13. DAFALGAN [Concomitant]
     Indication: PAIN
  14. DIFFU-K [Concomitant]
     Dosage: 1CAP THREE TIMES PER DAY
     Route: 048

REACTIONS (2)
  - Pancytopenia [Recovering/Resolving]
  - Sepsis [Recovering/Resolving]
